FAERS Safety Report 21120966 (Version 1)
Quarter: 2022Q3

REPORT INFORMATION
  Report Type: Report from Study
  Country: US (occurrence: US)
  Receive Date: 20220722
  Receipt Date: 20220722
  Transmission Date: 20221027
  Serious: No
  Sender: FDA-Public Use
  Company Number: US-MIRM-000406

PATIENT
  Sex: Female

DRUGS (2)
  1. LIVMARLI [Suspect]
     Active Substance: MARALIXIBAT CHLORIDE
     Indication: Alagille syndrome
     Dosage: 29DEC2021: LOT #1847502/EXPIRY 31MAY2023?26JAN2022: LOT #1847502/EXPIRY 31MAY2023?22FEB2022: LOT ...
     Route: 048
  2. LIVMARLI [Suspect]
     Active Substance: MARALIXIBAT CHLORIDE
     Indication: Alagille syndrome
     Route: 048
     Dates: start: 20220418

REACTIONS (2)
  - Gastroenteritis viral [Unknown]
  - Pruritus [Unknown]
